FAERS Safety Report 5215238-3 (Version None)
Quarter: 2006Q4

REPORT INFORMATION
  Report Type: 
  Country: None (occurrence: None)
  Receive Date: 20061120
  Receipt Date: 20060522
  Transmission Date: 20070319
  Serious: Yes (Hospitalization)
  Sender: FDA-Public Use
  Company Number: SP00872

PATIENT

DRUGS (1)
  1. VISICOL [Suspect]

REACTIONS (2)
  - CONVULSION [None]
  - ELECTROLYTE IMBALANCE [None]
